FAERS Safety Report 9162169 (Version 8)
Quarter: 2013Q3

REPORT INFORMATION
  Report Type: Spontaneous
  Country: GB (occurrence: GB)
  Receive Date: 20130314
  Receipt Date: 20130725
  Transmission Date: 20140515
  Serious: Yes (Other)
  Sender: FDA-Public Use
  Company Number: PHFR2013GB001489

PATIENT
  Age: 32 Year
  Sex: Male

DRUGS (3)
  1. CLOZARIL [Suspect]
     Indication: SCHIZOPHRENIA
     Dosage: UNK UKN, UNK
     Route: 048
     Dates: start: 20120921
  2. CLOZARIL [Suspect]
     Dosage: UNK
     Route: 048
     Dates: start: 20130308
  3. CLOZARIL [Suspect]
     Dosage: UNK
     Route: 048
     Dates: start: 20130327

REACTIONS (8)
  - Viral infection [Unknown]
  - Schizophrenia [Unknown]
  - Delusion [Unknown]
  - Mental impairment [Unknown]
  - Agranulocytosis [Unknown]
  - Neutrophil count decreased [Recovered/Resolved]
  - White blood cell count increased [Recovered/Resolved]
  - Neutrophil count increased [Recovered/Resolved]
